FAERS Safety Report 8544939-4 (Version None)
Quarter: 2012Q3

REPORT INFORMATION
  Report Type: 
  Country: None (occurrence: None)
  Receive Date: 20120727
  Receipt Date: 20120619
  Transmission Date: 20120928
  Serious: Yes (Hospitalization, Disabling, Other)
  Sender: FDA-Public Use
  Company Number: US-009507513-1110USA02432

PATIENT

DRUGS (12)
  1. ALENDRONATE SODIUM [Suspect]
     Indication: OSTEOPOROSIS
  2. FOSAMAX [Suspect]
     Indication: OSTEOPENIA
     Dosage: 10 MG, UNK
     Route: 048
     Dates: start: 19970101, end: 20000101
  3. FOSAMAX [Suspect]
     Dosage: 80 MG, QW
     Route: 048
  4. BONIVA [Suspect]
     Indication: OSTEOPOROSIS
  5. CALCIUM (UNSPECIFIED) (+) VITAMIN D (UNSPECIFIED) [Concomitant]
     Dosage: UNK UNK, BID
  6. MK-9278 [Concomitant]
     Dosage: UNK UNK, QD
  7. TAMOXIFEN CITRATE [Concomitant]
     Indication: BREAST CANCER
     Dates: start: 19930101
  8. FOSAMAX [Suspect]
     Indication: OSTEOPOROSIS
     Dosage: 70 MG, QW
     Route: 048
     Dates: start: 20000101, end: 20061001
  9. BONIVA [Suspect]
     Indication: OSTEOPENIA
     Dosage: 150 MG, QM
     Dates: start: 20061001, end: 20090701
  10. CALCIUM (UNSPECIFIED) [Concomitant]
  11. ALENDRONATE SODIUM [Suspect]
     Indication: OSTEOPENIA
     Dosage: 70 MG, QW
     Dates: start: 20090720, end: 20100101
  12. VITAMIN D (UNSPECIFIED) [Concomitant]
     Indication: COELIAC DISEASE
     Dosage: UNK UNK, QW

REACTIONS (57)
  - FOOT FRACTURE [None]
  - UTERINE POLYP [None]
  - DIVERTICULUM [None]
  - CONTUSION [None]
  - VITAMIN B12 DEFICIENCY [None]
  - CHEST DISCOMFORT [None]
  - FLANK PAIN [None]
  - FATIGUE [None]
  - STOMATITIS [None]
  - APHTHOUS STOMATITIS [None]
  - RASH [None]
  - DIZZINESS POSTURAL [None]
  - SKIN DISCOLOURATION [None]
  - ARTHROPATHY [None]
  - DIZZINESS [None]
  - ATTENTION DEFICIT/HYPERACTIVITY DISORDER [None]
  - VITAMIN D DEFICIENCY [None]
  - VIRAL INFECTION [None]
  - BRONCHITIS [None]
  - OVERDOSE [None]
  - BODY HEIGHT DECREASED [None]
  - LUNG NEOPLASM [None]
  - DEVICE BREAKAGE [None]
  - TOOTH DISORDER [None]
  - HAND FRACTURE [None]
  - COELIAC DISEASE [None]
  - IRON DEFICIENCY ANAEMIA [None]
  - CAPSULAR CONTRACTURE ASSOCIATED WITH BREAST IMPLANT [None]
  - ABNORMAL LOSS OF WEIGHT [None]
  - MUSCLE SPASMS [None]
  - NASAL SEPTUM DEVIATION [None]
  - COCCIDIOIDOMYCOSIS [None]
  - TOOTH FRACTURE [None]
  - HYPOTENSION [None]
  - ACUTE SINUSITIS [None]
  - OSTEONECROSIS OF JAW [None]
  - GINGIVAL DISORDER [None]
  - WRIST FRACTURE [None]
  - CELLULITIS [None]
  - URETHRITIS NONINFECTIVE [None]
  - HAEMORRHOIDS [None]
  - PALPITATIONS [None]
  - DRUG INEFFECTIVE [None]
  - TEMPOROMANDIBULAR JOINT SYNDROME [None]
  - EAR INFECTION [None]
  - MENISCUS LESION [None]
  - LYMPHADENOPATHY [None]
  - UPPER LIMB FRACTURE [None]
  - PEPTIC ULCER [None]
  - SENSATION OF FOREIGN BODY [None]
  - FALL [None]
  - HYPOAESTHESIA [None]
  - HEADACHE [None]
  - MENTAL DISORDER [None]
  - EXPOSED BONE IN JAW [None]
  - ORAL DISORDER [None]
  - PNEUMONIA [None]
